FAERS Safety Report 5688089-3 (Version None)
Quarter: 2008Q1

REPORT INFORMATION
  Report Type: 
  Country: None (occurrence: None)
  Receive Date: 20080327
  Receipt Date: 20080313
  Transmission Date: 20080703
  Serious: Yes (Other)
  Sender: FDA-Public Use
  Company Number: B0511582A

PATIENT
  Age: 40 Year
  Sex: Male

DRUGS (4)
  1. MELPHALAN UNSPECIFIED INJECTABLE (GENERIC) (MELPHALAN) [Suspect]
     Indication: B-CELL LYMPHOMA
     Dosage: 140 MG/M2 / PER DAY / INTRAVENOUS
     Route: 042
     Dates: start: 20070301
  2. RANIMUSTINE (FORMULATION UNKNOWN) (RANIMUSTINE) [Suspect]
     Indication: B-CELL LYMPHOMA
     Dosage: 250 MG/M2 / PER DAY / INTRAVENOUS
     Route: 042
  3. ETOPOSIDE [Suspect]
     Indication: B-CELL LYMPHOMA
     Dosage: 400 MG/M2 / PER DAY / INTRAVENOUS INFUS
     Route: 042
  4. RITUXIMAB (FORMULATION UNKNOWN) (RITUXIMAB) [Suspect]
     Indication: B-CELL LYMPHOMA
     Dosage: 375MG/M2 / PER DAY / INTRAVENOUS INFUS

REACTIONS (5)
  - CARDIAC FAILURE [None]
  - HYPERAESTHESIA [None]
  - PERICARDIAL EFFUSION [None]
  - THROMBOTIC MICROANGIOPATHY [None]
  - VENTRICULAR HYPOKINESIA [None]
